FAERS Safety Report 7575128-8 (Version None)
Quarter: 2011Q2

REPORT INFORMATION
  Report Type: 
  Country: None (occurrence: None)
  Receive Date: 20110627
  Receipt Date: 20090412
  Transmission Date: 20111010
  Serious: Yes (Death, Other)
  Sender: FDA-Public Use
  Company Number: US-BAYER-200917868NA

PATIENT
  Age: 52 Year
  Sex: Male
  Weight: 86 kg

DRUGS (9)
  1. LASIX [Concomitant]
     Dosage: 40 MG, UNK
     Route: 048
  2. COUMADIN [Concomitant]
     Dosage: 7.5 MG, UNK
     Route: 048
  3. LOPRESSOR [Concomitant]
     Dosage: 100 MG, UNK
     Route: 048
  4. TENORMIN [Concomitant]
     Dosage: 100 MG, UNK
     Route: 048
  5. TRASYLOL [Suspect]
     Indication: PRODUCT USED FOR UNKNOWN INDICATION
     Dosage: 200 ML PUMP PRIME
     Route: 042
     Dates: start: 20030516
  6. LIDOCAINE [Concomitant]
     Dosage: 100 MG, UNK
     Route: 042
  7. HEPARIN [Concomitant]
     Dosage: 3000UNITS
     Route: 042
  8. VANCOMYCIN [Concomitant]
  9. PROPOFOL [Concomitant]
     Route: 042

REACTIONS (14)
  - STRESS [None]
  - PAIN [None]
  - MYOCARDIAL INFARCTION [None]
  - ANXIETY [None]
  - INJURY [None]
  - RENAL IMPAIRMENT [None]
  - MULTI-ORGAN FAILURE [None]
  - DEATH [None]
  - RENAL FAILURE [None]
  - RENAL INJURY [None]
  - UNEVALUABLE EVENT [None]
  - ANHEDONIA [None]
  - EMOTIONAL DISTRESS [None]
  - FEAR [None]
